FAERS Safety Report 9317792 (Version 1)
Quarter: 2013Q1

REPORT INFORMATION
  Report Type: Spontaneous
  Country: US (occurrence: None)
  Receive Date: 20130123
  Receipt Date: 20130123
  Transmission Date: 20140127
  Serious: Yes (Hospitalization)
  Sender: FDA-Public Use
  Company Number: ACO_23405_2010

PATIENT
  Age: 45 Year
  Sex: Female
  Weight: 113.4 kg

DRUGS (12)
  1. AMPYRA (DALFAMPRIDINE) TABLET, 10MG [Suspect]
     Indication: GAIT DISTURBANCE
     Dates: start: 201007, end: 201007
  2. LYRICA (PREGABALIN) [Concomitant]
  3. VIMPAT [Concomitant]
  4. ZANAFLEX [Concomitant]
  5. GILENYA (FINGOLIMOD HYDROCHLORIDE) [Concomitant]
  6. BYSTOLIC [Concomitant]
  7. HYDROCHLOROTHIAZIDE (HYDROCHLOROTHIAZIDE) [Concomitant]
  8. PRISTIQ (DESVENLAFAXINE SUCCINATE) [Concomitant]
  9. RELAFEN (NABUMETONE) [Concomitant]
  10. RESTORIL (TEMAZEPAM) [Concomitant]
  11. CLONAZEPAM (CLONAZEPAM) (CLONAZEPAM) [Concomitant]
  12. NEXIUM (ESOMEPRAZOLE MAGNESIUM) [Concomitant]

REACTIONS (5)
  - Burning sensation [None]
  - Hypoaesthesia [None]
  - Pain [None]
  - Multiple sclerosis relapse [None]
  - Coordination abnormal [None]
